FAERS Safety Report 17056049 (Version 1)
Quarter: 2019Q4

REPORT INFORMATION
  Report Type: Spontaneous
  Country: US (occurrence: US)
  Receive Date: 20191121
  Receipt Date: 20191121
  Transmission Date: 20200122
  Serious: Yes (Hospitalization, Other)
  Sender: FDA-Public Use
  Company Number: US-AUROBINDO-AUR-APL-2019-073136

PATIENT
  Age: 12 Year
  Sex: Female

DRUGS (1)
  1. DIPHENHYDRAMINE. [Suspect]
     Active Substance: DIPHENHYDRAMINE
     Indication: PRODUCT USED FOR UNKNOWN INDICATION
     Dosage: 7500MG (147 MG/KG)
     Route: 065

REACTIONS (9)
  - Ventricular dysfunction [Recovered/Resolved]
  - Toxicity to various agents [Unknown]
  - Ventricular tachycardia [Recovered/Resolved]
  - Seizure [Unknown]
  - Electrocardiogram QT prolonged [Recovered/Resolved]
  - Anticholinergic syndrome [Recovered/Resolved]
  - Cardiovascular disorder [Recovered/Resolved]
  - Overdose [Unknown]
  - Electrocardiogram QRS complex prolonged [Recovered/Resolved]
